FAERS Safety Report 18182248 (Version 1)
Quarter: 2020Q3

REPORT INFORMATION
  Report Type: Report from Study
  Country: US (occurrence: US)
  Receive Date: 20200821
  Receipt Date: 20200821
  Transmission Date: 20201103
  Serious: Yes (Other)
  Sender: FDA-Public Use
  Company Number: US-MYLANLABS-2020M1071624

PATIENT
  Age: 57 Year
  Sex: Female
  Weight: 109 kg

DRUGS (1)
  1. GLATIRAMER ACETATE INJECTION [Suspect]
     Active Substance: GLATIRAMER ACETATE
     Indication: MULTIPLE SCLEROSIS
     Dosage: 40MG SQ 3 TIMES/WEEK
     Route: 058

REACTIONS (9)
  - Malaise [Unknown]
  - Mobility decreased [Unknown]
  - Injection site scab [Unknown]
  - Asthenia [Unknown]
  - Anxiety [Unknown]
  - Burning sensation [Unknown]
  - Drug ineffective [Unknown]
  - Injection site erythema [Unknown]
  - Product administration error [Unknown]

NARRATIVE: CASE EVENT DATE: 202008
